FAERS Safety Report 16740562 (Version 1)
Quarter: 2019Q4

REPORT INFORMATION
  Report Type: Spontaneous
  Country: US (occurrence: US)
  Receive Date: 20190824
  Receipt Date: 20190824
  Transmission Date: 20200122
  Serious: Yes (Disabling)
  Sender: FDA-Public Use
  Company Number: None

PATIENT
  Age: 61 Year
  Sex: Female

DRUGS (2)
  1. RELPAX [Suspect]
     Active Substance: ELETRIPTAN HYDROBROMIDE
     Indication: MIGRAINE
     Dosage: ?          QUANTITY:1 TABLET(S);?
     Route: 048
     Dates: start: 20190726, end: 20190822
  2. OVER THE  COUNTER VITAMINS [Concomitant]

REACTIONS (3)
  - Recalled product administered [None]
  - Dizziness [None]
  - Gastric disorder [None]

NARRATIVE: CASE EVENT DATE: 20190822
